FAERS Safety Report 15452080 (Version 1)
Quarter: 2018Q4

REPORT INFORMATION
  Report Type: Spontaneous
  Country: ZA (occurrence: ZA)
  Receive Date: 20181001
  Receipt Date: 20181001
  Transmission Date: 20190204
  Serious: Yes (Other)
  Sender: FDA-Public Use
  Company Number: ZA-PFIZER INC-2018389513

PATIENT
  Age: 65 Year
  Sex: Female

DRUGS (4)
  1. LOMANOR [Suspect]
     Active Substance: AMLODIPINE BESYLATE
     Dosage: 5 MG, UNK
  2. ADCO-SIMVASTATIN [Suspect]
     Active Substance: SIMVASTATIN
     Dosage: 40 MG, UNK
  3. RIDAQ [Suspect]
     Active Substance: HYDROCHLOROTHIAZIDE
     Dosage: 25 MG, UNK
  4. ZOPIVANE [Suspect]
     Active Substance: ZOPICLONE
     Dosage: 7.5 MG, UNK

REACTIONS (2)
  - Thrombosis [Unknown]
  - Malaise [Unknown]
